FAERS Safety Report 11180011 (Version 2)
Quarter: 2015Q3

REPORT INFORMATION
  Report Type: Spontaneous
  Country: US (occurrence: US)
  Receive Date: 20150611
  Receipt Date: 20150910
  Transmission Date: 20151125
  Serious: No
  Sender: FDA-Public Use
  Company Number: US-TEVA-554061USA

PATIENT
  Age: 64 Year
  Sex: Female

DRUGS (3)
  1. DULOXETINE. [Suspect]
     Active Substance: DULOXETINE
     Indication: DEPRESSION
     Dosage: 60 MILLIGRAM DAILY;
     Route: 048
     Dates: start: 201410
  2. PRAVASTATIN [Concomitant]
     Active Substance: PRAVASTATIN\PRAVASTATIN SODIUM
     Dosage: 40 MILLIGRAM DAILY;
     Route: 048
     Dates: start: 20140811
  3. VIVELLE [Concomitant]
     Active Substance: ESTRADIOL
     Dosage: 0.1MG/24 HR TRANSDERMAL PATCH TWICE WEEKLY
     Dates: start: 20140811

REACTIONS (10)
  - Depression [Recovering/Resolving]
  - Product substitution issue [Unknown]
  - Arthralgia [Recovering/Resolving]
  - Feeling hot [Recovering/Resolving]
  - Pain [Recovering/Resolving]
  - Pain in extremity [Recovering/Resolving]
  - Anxiety [Recovering/Resolving]
  - Drug ineffective [Unknown]
  - Back pain [Recovering/Resolving]
  - Intervertebral disc protrusion [Unknown]

NARRATIVE: CASE EVENT DATE: 201501
